FAERS Safety Report 9882055 (Version 2)
Quarter: 2014Q1

REPORT INFORMATION
  Report Type: Spontaneous
  Country: BR (occurrence: BR)
  Receive Date: 20140207
  Receipt Date: 20140207
  Transmission Date: 20141002
  Serious: Yes (Hospitalization)
  Sender: FDA-Public Use
  Company Number: BR-SANOFI-AVENTIS-2013SA079578

PATIENT
  Age: 21 Year
  Sex: Female

DRUGS (1)
  1. CLEXANE [Suspect]
     Indication: PRODUCT USED FOR UNKNOWN INDICATION
     Route: 065

REACTIONS (6)
  - Renal impairment [Not Recovered/Not Resolved]
  - Pre-eclampsia [Unknown]
  - Apparent death [Unknown]
  - Foetal distress syndrome [Unknown]
  - Oedema peripheral [Not Recovered/Not Resolved]
  - Exposure during pregnancy [Unknown]
